FAERS Safety Report 19656901 (Version 4)
Quarter: 2021Q3

REPORT INFORMATION
  Report Type: Spontaneous
  Country: US (occurrence: US)
  Receive Date: 20210804
  Receipt Date: 20210916
  Transmission Date: 20211014
  Serious: No
  Sender: FDA-Public Use
  Company Number: US-GLAXOSMITHKLINE-US2021163864

PATIENT
  Age: 52 Year
  Sex: Male

DRUGS (1)
  1. NUCALA [Suspect]
     Active Substance: MEPOLIZUMAB
     Indication: ASTHMA
     Dosage: 100 MG/ML, Z
     Route: 058
     Dates: start: 20210702

REACTIONS (8)
  - Migraine [Recovered/Resolved]
  - Erythema [Recovered/Resolved]
  - Therapeutic response unexpected [Unknown]
  - Exposure via skin contact [Unknown]
  - Product complaint [Unknown]
  - Wrong technique in device usage process [Unknown]
  - Underdose [Unknown]
  - Accidental exposure to product [Unknown]

NARRATIVE: CASE EVENT DATE: 202109
